FAERS Safety Report 14204556 (Version 1)
Quarter: 2017Q4

REPORT INFORMATION
  Report Type: Spontaneous
  Country: FR (occurrence: FR)
  Receive Date: 20171120
  Receipt Date: 20171120
  Transmission Date: 20180321
  Serious: Yes (Hospitalization, Other)
  Sender: FDA-Public Use
  Company Number: FR-MYLANLABS-2017M1072321

PATIENT
  Age: 59 Year
  Sex: Female

DRUGS (4)
  1. QUETIAPINA MYLAN [Suspect]
     Active Substance: QUETIAPINE
     Dosage: 300 MG, QD
     Route: 048
     Dates: start: 20171017
  2. LAMICTAL [Concomitant]
     Active Substance: LAMOTRIGINE
     Indication: PRODUCT USED FOR UNKNOWN INDICATION
     Dosage: 200 MG, QD
  3. QUETIAPINA MYLAN [Suspect]
     Active Substance: QUETIAPINE
     Indication: PERSECUTORY DELUSION
     Dosage: 50 MG, QD
     Route: 048
     Dates: start: 20171012
  4. QUETIAPINA MYLAN [Suspect]
     Active Substance: QUETIAPINE
     Dosage: 100 MG, QD
     Route: 048
     Dates: start: 20171013, end: 20171016

REACTIONS (2)
  - Posterior reversible encephalopathy syndrome [Recovering/Resolving]
  - Blood pressure increased [None]

NARRATIVE: CASE EVENT DATE: 20171020
